FAERS Safety Report 6899280-2 (Version None)
Quarter: 2010Q3

REPORT INFORMATION
  Report Type: 
  Country: None (occurrence: None)
  Receive Date: 20100802
  Receipt Date: 20080521
  Transmission Date: 20110219
  Serious: No
  Sender: FDA-Public Use
  Company Number: US-PFIZER INC-2008002645

PATIENT
  Sex: Female

DRUGS (2)
  1. LYRICA [Suspect]
     Indication: HYPOAESTHESIA
  2. LYRICA [Suspect]
     Indication: PARAESTHESIA

REACTIONS (1)
  - DRUG INEFFECTIVE [None]
